FAERS Safety Report 6247640-5 (Version None)
Quarter: 2009Q2

REPORT INFORMATION
  Report Type: 
  Country: None (occurrence: None)
  Receive Date: 20090626
  Receipt Date: 20090623
  Transmission Date: 20091009
  Serious: Yes (Death)
  Sender: FDA-Public Use
  Company Number: US-GILEAD-2009-0022478

PATIENT
  Sex: Female
  Weight: 113.5 kg

DRUGS (29)
  1. LETAIRIS [Suspect]
     Indication: PULMONARY ARTERIAL HYPERTENSION
     Route: 048
     Dates: start: 20080728, end: 20090501
  2. DIGOXIN [Concomitant]
     Indication: ATRIAL FIBRILLATION
  3. METOPROLOL SUCCINATE [Concomitant]
     Indication: ATRIAL FIBRILLATION
  4. COUMADIN [Concomitant]
     Indication: ATRIAL FIBRILLATION
  5. NITROGLYCERIN [Concomitant]
     Dates: start: 20090501
  6. LIPITOR [Concomitant]
  7. ZOCOR [Concomitant]
     Indication: HYPERLIPIDAEMIA
     Dates: start: 20090501
  8. SPIRONOLACTONE [Concomitant]
  9. ALBUTEROL [Concomitant]
  10. OXYGEN [Concomitant]
  11. LEXAPRO [Concomitant]
  12. MIRAPEX [Concomitant]
  13. GABAPENTIN [Concomitant]
  14. SINEMET [Concomitant]
     Indication: PARKINSON'S DISEASE
  15. LIDODERM [Concomitant]
  16. PROTONIX [Concomitant]
     Indication: GASTROOESOPHAGEAL REFLUX DISEASE
  17. PRILOSEC [Concomitant]
  18. TYLENOL (CAPLET) [Concomitant]
  19. FENTANYL-100 [Concomitant]
     Indication: PAIN
     Dates: start: 20090301
  20. MORPHINE [Concomitant]
     Indication: PAIN
  21. FLORINEF [Concomitant]
  22. COLACE [Concomitant]
  23. FOSAMAX [Concomitant]
  24. MULTI-VITAMIN [Concomitant]
  25. POTASSIUM CHLORIDE [Concomitant]
  26. CALCIUM [Concomitant]
  27. VITAMIN D [Concomitant]
  28. MAGNESIUM SULFATE [Concomitant]
  29. LUTEIN [Concomitant]

REACTIONS (1)
  - CARDIAC FAILURE [None]
